FAERS Safety Report 9137523 (Version 1)
Quarter: 2013Q1

REPORT INFORMATION
  Report Type: Spontaneous
  Country: US (occurrence: US)
  Receive Date: 20130219
  Receipt Date: 20130219
  Transmission Date: 20140127
  Serious: No
  Sender: FDA-Public Use
  Company Number: US-BRISTOL-MYERS SQUIBB COMPANY-17149857

PATIENT
  Age: 40 Year
  Sex: Female
  Weight: 111.11 kg

DRUGS (2)
  1. ORENCIA [Suspect]
     Indication: RHEUMATOID ARTHRITIS
     Dosage: NO OF DOSES:3; LAST INF:16NOV2012
     Route: 042
  2. ARAVA [Suspect]
     Dates: start: 201206

REACTIONS (4)
  - Ear infection [Unknown]
  - Haemorrhage [Unknown]
  - Rheumatoid arthritis [Unknown]
  - Localised infection [Unknown]
